FAERS Safety Report 16645777 (Version 1)
Quarter: 2019Q3

REPORT INFORMATION
  Report Type: Spontaneous
  Country: CA (occurrence: CA)
  Receive Date: 20190730
  Receipt Date: 20190730
  Transmission Date: 20191004
  Serious: Yes (Death, Hospitalization)
  Sender: FDA-Public Use
  Company Number: CA-TEVA-2019-CA-1083527

PATIENT
  Sex: Male

DRUGS (2)
  1. TYLENOL EXTRA STRENGTH [Suspect]
     Active Substance: ACETAMINOPHEN
     Indication: PAIN IN EXTREMITY
     Dosage: 4 GRAM DAILY;
     Route: 065
  2. IBUPROFEN. [Suspect]
     Active Substance: IBUPROFEN
     Indication: PAIN IN EXTREMITY
     Route: 065

REACTIONS (18)
  - Cellulitis [Fatal]
  - Pain in extremity [Fatal]
  - Peripheral swelling [Fatal]
  - Influenza like illness [Fatal]
  - Necrotising fasciitis [Fatal]
  - Septic shock [Fatal]
  - Toxic shock syndrome [Fatal]
  - Cardiac arrest [Fatal]
  - Swelling [Fatal]
  - Contusion [Fatal]
  - Rash [Fatal]
  - Hypotension [Fatal]
  - Upper respiratory tract infection [Fatal]
  - Beta haemolytic streptococcal infection [Fatal]
  - Erythema [Fatal]
  - Muscle spasms [Fatal]
  - Organ failure [Fatal]
  - Tachycardia [Fatal]
